FAERS Safety Report 7870646-7 (Version None)
Quarter: 2011Q4

REPORT INFORMATION
  Report Type: 
  Country: None (occurrence: None)
  Receive Date: 20111029
  Receipt Date: 20110221
  Transmission Date: 20120403
  Serious: No
  Sender: FDA-Public Use
  Company Number: US-AMGEN-USASP2011009857

PATIENT
  Age: 54 Year
  Sex: Male

DRUGS (2)
  1. ENBREL [Suspect]
     Indication: RHEUMATOID ARTHRITIS
     Dates: start: 20100924, end: 20110211
  2. CHLORAMPHENICOL [Concomitant]

REACTIONS (7)
  - INFLUENZA [None]
  - EAR PAIN [None]
  - SINUSITIS [None]
  - TOOTHACHE [None]
  - PAIN IN JAW [None]
  - NECK PAIN [None]
  - INSOMNIA [None]
